FAERS Safety Report 10925034 (Version 1)
Quarter: 2015Q1

REPORT INFORMATION
  Report Type: Spontaneous
  Country: US (occurrence: None)
  Receive Date: 20150316
  Receipt Date: 20150316
  Transmission Date: 20150721
  Serious: Yes (Other)
  Sender: FDA-Public Use
  Company Number: None

PATIENT
  Age: 56 Year
  Sex: Female
  Weight: 63.5 kg

DRUGS (1)
  1. LEVOFLOXACIN. [Suspect]
     Active Substance: LEVOFLOXACIN
     Indication: SINUSITIS

REACTIONS (7)
  - Oral candidiasis [None]
  - Pruritus [None]
  - Ligament disorder [None]
  - Chronic obstructive pulmonary disease [None]
  - Feeling abnormal [None]
  - Asthma [None]
  - Dysphagia [None]

NARRATIVE: CASE EVENT DATE: 20140526
